FAERS Safety Report 21141472 (Version 1)
Quarter: 2022Q3

REPORT INFORMATION
  Report Type: Spontaneous
  Country: US (occurrence: None)
  Receive Date: 20220727
  Receipt Date: 20220727
  Transmission Date: 20221027
  Serious: No
  Sender: FDA-Public Use
  Company Number: None

PATIENT
  Sex: Female

DRUGS (1)
  1. HUMIRA [Suspect]
     Active Substance: ADALIMUMAB
     Indication: Crohn^s disease
     Dosage: OTHER QUANTITY : 80MG/0.8ML?FREQUENCY : DAY 1, THEN 1 PEN ON DAY 15, THEN START MAINTENANCE DOSING A
     Route: 058
     Dates: start: 20220629

REACTIONS (1)
  - Drug ineffective [None]
